FAERS Safety Report 8197282-X (Version None)
Quarter: 2012Q1

REPORT INFORMATION
  Report Type: 
  Country: None (occurrence: None)
  Receive Date: 20120309
  Receipt Date: 20111019
  Transmission Date: 20120608
  Serious: Yes (Other)
  Sender: FDA-Public Use
  Company Number: JP-PFIZER INC-2012058110

PATIENT
  Age: 70 Year
  Sex: Female

DRUGS (1)
  1. MIGLITOL [Suspect]
     Dosage: 150 MG, UNK
     Route: 048
     Dates: start: 20110701, end: 20111019

REACTIONS (1)
  - HEPATIC FUNCTION ABNORMAL [None]
